FAERS Safety Report 7064969-1 (Version None)
Quarter: 2010Q4

REPORT INFORMATION
  Report Type: 
  Country: None (occurrence: None)
  Receive Date: 20101027
  Receipt Date: 19960219
  Transmission Date: 20110411
  Serious: Yes (Congenital Anomaly)
  Sender: FDA-Public Use
  Company Number: GB-ROCHE-950400276001

PATIENT

DRUGS (1)
  1. LARIAM [Suspect]
     Indication: MALARIA PROPHYLAXIS
     Dates: start: 19950307, end: 19950331

REACTIONS (1)
  - ANKYLOGLOSSIA CONGENITAL [None]
